FAERS Safety Report 10265790 (Version 2)
Quarter: 2014Q3

REPORT INFORMATION
  Report Type: Spontaneous
  Country: US (occurrence: US)
  Receive Date: 20140627
  Receipt Date: 20140813
  Transmission Date: 20150326
  Serious: Yes (Other)
  Sender: FDA-Public Use
  Company Number: US-JNJFOC-20140619369

PATIENT
  Age: 47 Year
  Sex: Male
  Weight: 76.2 kg

DRUGS (26)
  1. NORVIR [Suspect]
     Active Substance: RITONAVIR
     Indication: HIV INFECTION
     Route: 048
  2. EMTRIVA [Concomitant]
     Active Substance: EMTRICITABINE
     Indication: HIV INFECTION
     Dosage: TWICE DAILY EVERY OTHER DAY
     Route: 048
  3. ATORVASTATIN [Concomitant]
     Active Substance: ATORVASTATIN
     Indication: BLOOD CHOLESTEROL ABNORMAL
     Route: 048
  4. CITRACAL [Concomitant]
     Active Substance: CALCIUM CITRATE
     Indication: VITAMIN D DEFICIENCY
     Dosage: 2 DROPS
     Route: 048
  5. PATANOL [Concomitant]
     Active Substance: OLOPATADINE HYDROCHLORIDE
     Indication: RHINITIS
     Dosage: 2 DROPS
     Route: 031
  6. ERGOCALCIFEROL. [Concomitant]
     Active Substance: ERGOCALCIFEROL
     Indication: VITAMIN D DEFICIENCY
     Dosage: 50 000 UNITS/ MONTH
     Route: 048
     Dates: start: 201311
  7. VITAMIN C [Concomitant]
     Active Substance: ASCORBIC ACID
     Indication: HEPATITIS A
     Dosage: 50 000 UNITS
     Route: 048
  8. BECONASE AQ [Concomitant]
     Active Substance: BECLOMETHASONE DIPROPIONATE MONOHYDRATE
     Indication: SINUSITIS
     Route: 045
  9. ELIDEL [Concomitant]
     Active Substance: PIMECROLIMUS
     Indication: SKIN DISORDER
     Dosage: TWICE DAILY EVERY OTHER DAY
     Route: 061
  10. FINASTERIDE. [Concomitant]
     Active Substance: FINASTERIDE
     Indication: PROSTATOMEGALY
     Dosage: 2 DROPS
     Route: 048
  11. NORVIR [Suspect]
     Active Substance: RITONAVIR
     Indication: HIV INFECTION
     Route: 048
     Dates: start: 20100805
  12. ISENTRESS [Concomitant]
     Active Substance: RALTEGRAVIR POTASSIUM
     Indication: HIV INFECTION
     Route: 048
  13. GARLIC. [Concomitant]
     Active Substance: GARLIC
     Dosage: 2 DROPS
     Route: 048
  14. VITAMIN B12 [Concomitant]
     Active Substance: CYANOCOBALAMIN
     Indication: VITAMIN B12 DEFICIENCY
     Dosage: 50 000 UNITS
     Route: 048
  15. PREZISTA [Suspect]
     Active Substance: DARUNAVIR ETHANOLATE
     Indication: HIV INFECTION
     Route: 048
     Dates: start: 20100805
  16. KETOCONAZOLE 2 % [Concomitant]
     Indication: SKIN DISORDER
     Route: 061
  17. REFRESH TEARS LUBRICANT [Concomitant]
     Active Substance: CARBOXYMETHYLCELLULOSE SODIUM
     Indication: DRY EYE
     Dosage: 1 TEASPOON
     Route: 031
  18. ACYCLOVIR. [Concomitant]
     Active Substance: ACYCLOVIR
     Indication: HERPES SIMPLEX
     Route: 048
  19. FISH OIL OMEGA 3 [Concomitant]
     Dosage: 2 DROPS
     Route: 048
  20. STREPTASE [Concomitant]
     Active Substance: STREPTOKINASE
     Dosage: 1 TEASPOON
     Route: 048
  21. PREZISTA [Suspect]
     Active Substance: DARUNAVIR ETHANOLATE
     Indication: HIV INFECTION
     Route: 048
  22. INTELENCE [Suspect]
     Active Substance: ETRAVIRINE
     Indication: HIV INFECTION
     Route: 048
     Dates: start: 20110621
  23. DIAZEPAM. [Suspect]
     Active Substance: DIAZEPAM
     Indication: PRODUCT USED FOR UNKNOWN INDICATION
     Route: 048
     Dates: start: 20100805
  24. DESONIDE. [Concomitant]
     Active Substance: DESONIDE
     Indication: SKIN DISORDER
     Dosage: TWICE DAILY EVERY OTHER DAY
     Route: 061
  25. PATANOL [Concomitant]
     Active Substance: OLOPATADINE HYDROCHLORIDE
     Indication: MULTIPLE ALLERGIES
     Dosage: 2 DROPS
     Route: 031
  26. CITRACAL [Concomitant]
     Active Substance: CALCIUM CITRATE
     Indication: CALCIUM DEFICIENCY
     Dosage: 2 DROPS
     Route: 048

REACTIONS (7)
  - Wrong technique in drug usage process [Not Recovered/Not Resolved]
  - Product physical issue [Unknown]
  - Hepatic steatosis [Not Recovered/Not Resolved]
  - Retching [Unknown]
  - Osteoporosis [Not Recovered/Not Resolved]
  - Alopecia [Not Recovered/Not Resolved]
  - Product lot number issue [Unknown]

NARRATIVE: CASE EVENT DATE: 2011
